FAERS Safety Report 19497995 (Version 1)
Quarter: 2021Q3

REPORT INFORMATION
  Report Type: Spontaneous
  Country: US (occurrence: US)
  Receive Date: 20210706
  Receipt Date: 20210706
  Transmission Date: 20211014
  Serious: Yes (Hospitalization, Other)
  Sender: FDA-Public Use
  Company Number: US-TARO-2021TAR00672

PATIENT

DRUGS (1)
  1. CLOBETASOL PROPIONATE CREAM USP 0.05% (EMOLLIENT) [Suspect]
     Active Substance: CLOBETASOL PROPIONATE
     Indication: PSORIASIS
     Dosage: BID, USUALLY APPLIED TWICE A DAY TO AFFECTED AREA
     Route: 061

REACTIONS (1)
  - Alcohol detoxification [Unknown]

NARRATIVE: CASE EVENT DATE: 20210613
